FAERS Safety Report 14287747 (Version 1)
Quarter: 2017Q4

REPORT INFORMATION
  Report Type: Report from Study
  Country: US (occurrence: US)
  Receive Date: 20171214
  Receipt Date: 20171214
  Transmission Date: 20180321
  Serious: Yes (Hospitalization, Other)
  Sender: FDA-Public Use
  Company Number: US-ROCHE-1657030

PATIENT
  Age: 29 Year
  Sex: Female
  Weight: 57.66 kg

DRUGS (11)
  1. FOLIC ACID. [Concomitant]
     Active Substance: FOLIC ACID
     Dosage: 400 MCG
     Route: 048
     Dates: start: 20151202, end: 20160504
  2. LABETALOL [Concomitant]
     Active Substance: LABETALOL\LABETALOL HYDROCHLORIDE
     Indication: HYPERTENSION
     Route: 048
     Dates: start: 20150926
  3. CAFFEINE. [Concomitant]
     Active Substance: CAFFEINE
     Dosage: 2.5 SERVING
     Route: 048
     Dates: start: 20160501, end: 20160530
  4. CAFFEINE. [Concomitant]
     Active Substance: CAFFEINE
     Dosage: 2 SERVING
     Route: 048
     Dates: start: 20160531, end: 20160627
  5. TYLENOL [Concomitant]
     Active Substance: ACETAMINOPHEN
     Indication: NASOPHARYNGITIS
     Dosage: 1 PILL
     Route: 048
     Dates: start: 20151101, end: 20151101
  6. CAFFEINE. [Concomitant]
     Active Substance: CAFFEINE
     Dosage: 1 SERVING
     Route: 048
     Dates: start: 20151201, end: 20160428
  7. TYLENOL [Concomitant]
     Active Substance: ACETAMINOPHEN
     Indication: HEADACHE
     Dosage: 1 PILL
     Route: 048
     Dates: start: 20151215, end: 20160627
  8. LABETALOL [Concomitant]
     Active Substance: LABETALOL\LABETALOL HYDROCHLORIDE
     Route: 048
     Dates: start: 20160219, end: 20160627
  9. FOLIC ACID. [Concomitant]
     Active Substance: FOLIC ACID
     Dosage: 400 MCG
     Route: 048
     Dates: start: 20160531, end: 20160627
  10. TOCILIZUMAB. [Suspect]
     Active Substance: TOCILIZUMAB
     Indication: TAKAYASU^S ARTERITIS
     Route: 042
     Dates: start: 20111101, end: 20160419
  11. CAFFEINE. [Concomitant]
     Active Substance: CAFFEINE
     Dosage: 1 SERVING
     Route: 048
     Dates: start: 20150926, end: 20151021

REACTIONS (3)
  - Cardiac failure [Unknown]
  - Off label use [Unknown]
  - Maternal exposure during pregnancy [Unknown]

NARRATIVE: CASE EVENT DATE: 20160702
